FAERS Safety Report 25611488 (Version 1)
Quarter: 2025Q3

REPORT INFORMATION
  Report Type: Spontaneous
  Country: US (occurrence: None)
  Receive Date: 20250725
  Receipt Date: 20250725
  Transmission Date: 20251020
  Serious: Yes (Other)
  Sender: FDA-CTU
  Company Number: None

PATIENT
  Age: 42 Year
  Sex: Female

DRUGS (1)
  1. VUMERITY [Suspect]
     Active Substance: DIROXIMEL FUMARATE
     Dosage: FREQUENCY : TWICE A DAY;?
     Route: 048

REACTIONS (8)
  - Therapy interrupted [None]
  - Hypoaesthesia [None]
  - Hemiparesis [None]
  - Mobility decreased [None]
  - Chest pain [None]
  - Dizziness [None]
  - Fall [None]
  - Multiple sclerosis relapse [None]
